FAERS Safety Report 16818226 (Version 2)
Quarter: 2019Q3

REPORT INFORMATION
  Report Type: Report from Study
  Country: US (occurrence: US)
  Receive Date: 20190917
  Receipt Date: 20190926
  Transmission Date: 20191005
  Serious: No
  Sender: FDA-Public Use
  Company Number: US-INCYTE CORPORATION-2019IN008808

PATIENT

DRUGS (7)
  1. OMEPRAZOLE. [Concomitant]
     Active Substance: OMEPRAZOLE
     Indication: POLYCYTHAEMIA VERA
     Dosage: 20 MILLIGRAM, QD
     Route: 065
     Dates: start: 20140217
  2. TRIAMCINOLONE ACETONIDE. [Concomitant]
     Active Substance: TRIAMCINOLONE ACETONIDE
     Indication: OSTEOARTHRITIS
     Dosage: 10 MILLIGRAM
     Route: 065
     Dates: start: 20180222
  3. FLUTICASONE. [Concomitant]
     Active Substance: FLUTICASONE
     Indication: HYPERSENSITIVITY
     Dosage: 50 NASAL SPRAY, QD
     Route: 045
     Dates: start: 20160330
  4. JAKAFI [Suspect]
     Active Substance: RUXOLITINIB
     Indication: POLYCYTHAEMIA VERA
     Dosage: 20 MILLIGRAM, QD
     Route: 048
     Dates: start: 20160603, end: 201606
  5. JAKAFI [Suspect]
     Active Substance: RUXOLITINIB
     Dosage: 10 MILLIGRAM, BID
     Route: 048
     Dates: start: 201905
  6. JAKAFI [Suspect]
     Active Substance: RUXOLITINIB
     Dosage: 10 MILLIGRAM, QD
     Route: 048
     Dates: start: 201606, end: 201905
  7. LIDOCAINE. [Concomitant]
     Active Substance: LIDOCAINE
     Indication: OSTEOARTHRITIS
     Dosage: 1 MILLILITER
     Route: 065
     Dates: start: 20180222

REACTIONS (2)
  - Skin laceration [Recovered/Resolved]
  - Anaemia [Recovering/Resolving]

NARRATIVE: CASE EVENT DATE: 201606
